FAERS Safety Report 15903634 (Version 2)
Quarter: 2019Q1

REPORT INFORMATION
  Report Type: Spontaneous
  Country: NL (occurrence: NL)
  Receive Date: 20190203
  Receipt Date: 20190212
  Transmission Date: 20190417
  Serious: Yes (Death, Hospitalization, Other)
  Sender: FDA-Public Use
  Company Number: NL-ACCORD-105121

PATIENT
  Age: 63 Year
  Sex: Male

DRUGS (8)
  1. DEXAMETHASONE. [Concomitant]
     Active Substance: DEXAMETHASONE
     Dosage: STRENGTH 4MG
  2. OXALIPLATIN. [Suspect]
     Active Substance: OXALIPLATIN
     Indication: COLON CANCER
     Dosage: STRENGTH 1 MG / MG (MILLIGRAMS PER MILLIGRAM),CAN NO LONGER BE TRACED
  3. FOLIC ACID. [Concomitant]
     Active Substance: FOLIC ACID
  4. ALLOPURINOL. [Concomitant]
     Active Substance: ALLOPURINOL
     Dosage: STRENGTH 100 MG
  5. ACENOCOUMAROL [Concomitant]
     Active Substance: ACENOCOUMAROL
     Dosage: STRENGTH 1 MG
  6. FLUOROURACIL. [Concomitant]
     Active Substance: FLUOROURACIL
  7. ENALAPRIL [Concomitant]
     Active Substance: ENALAPRIL
     Dosage: STRENGTH 10MG
  8. PANTOZOL [Concomitant]
     Active Substance: PANTOPRAZOLE SODIUM
     Dosage: STRENGTH 40 MG

REACTIONS (3)
  - Neuropathy peripheral [Unknown]
  - Pneumonia [Fatal]
  - Pulmonary embolism [Fatal]

NARRATIVE: CASE EVENT DATE: 2017
